FAERS Safety Report 24186354 (Version 1)
Quarter: 2024Q3

REPORT INFORMATION
  Report Type: Report from Study
  Country: US (occurrence: None)
  Receive Date: 20240808
  Receipt Date: 20240808
  Transmission Date: 20241017
  Serious: Yes (Hospitalization)
  Sender: ASTRAZENECA
  Company Number: 2021A712159

PATIENT
  Sex: Male

DRUGS (12)
  1. TAGRISSO [Suspect]
     Active Substance: OSIMERTINIB
     Indication: Non-small cell lung cancer
     Route: 048
     Dates: start: 20210622
  2. TAMSULOSIN [Concomitant]
     Active Substance: TAMSULOSIN
  3. TYLENOL [Concomitant]
     Active Substance: ACETAMINOPHEN
  4. FLUTICASONE [Concomitant]
     Active Substance: FLUTICASONE
  5. OXYCODONE [Concomitant]
     Active Substance: OXYCODONE
  6. HERBALS\TURMERIC [Concomitant]
     Active Substance: HERBALS\TURMERIC
  7. OMEPRAZOLE [Concomitant]
     Active Substance: OMEPRAZOLE
  8. FOLIC ACID [Concomitant]
     Active Substance: FOLIC ACID
  9. VITAMINS [Concomitant]
     Active Substance: VITAMINS
  10. MIRALAX [Concomitant]
     Active Substance: POLYETHYLENE GLYCOL 3350
  11. VITAMIN D2 [Concomitant]
     Active Substance: ERGOCALCIFEROL
  12. FISH OIL [Concomitant]
     Active Substance: FISH OIL

REACTIONS (1)
  - Small intestinal obstruction [Unknown]
